FAERS Safety Report 9004328 (Version 3)
Quarter: 2013Q1

REPORT INFORMATION
  Report Type: Report from Study
  Country: AR (occurrence: AR)
  Receive Date: 20130108
  Receipt Date: 20130110
  Transmission Date: 20140127
  Serious: Yes (Life-Threatening, Hospitalization, Other)
  Sender: FDA-Public Use
  Company Number: PHHO2012AR016743

PATIENT
  Age: 84 Year
  Sex: Male
  Weight: 90 kg

DRUGS (6)
  1. ACZ885 [Suspect]
     Indication: CARDIOVASCULAR EVENT PROPHYLAXIS
     Dosage: 50 MG, BID
     Route: 058
     Dates: start: 20120518
  2. NEFAZAN [Suspect]
     Indication: CORONARY ARTERY DISEASE
     Dosage: 75 MG, QD
     Dates: start: 20110126, end: 20121222
  3. ASPIRIN [Suspect]
     Indication: CORONARY ARTERY DISEASE
     Dosage: 100 MG, QD
     Dates: start: 20110126, end: 20121222
  4. DIOXAFLEX [Suspect]
     Indication: OSTEOARTHRITIS
     Dosage: 45 MG, BID
     Dates: start: 20111208, end: 20121222
  5. ROSUVASTATIN [Concomitant]
     Indication: CORONARY ARTERY DISEASE
     Dosage: 10 MG, QD
     Dates: start: 20110510
  6. ENALAPRIL [Concomitant]
     Indication: CARDIAC FAILURE
     Dosage: 5 MG, BID
     Dates: start: 20090918

REACTIONS (4)
  - Gastrointestinal haemorrhage [Recovered/Resolved]
  - Cardiac failure [Recovered/Resolved]
  - Angina unstable [Recovered/Resolved]
  - Anaemia [Recovered/Resolved]
